FAERS Safety Report 15790822 (Version 2)
Quarter: 2019Q1

REPORT INFORMATION
  Report Type: Spontaneous
  Country: US (occurrence: US)
  Receive Date: 20190104
  Receipt Date: 20190107
  Transmission Date: 20190417
  Serious: Yes (Other)
  Sender: FDA-Public Use
  Company Number: US-TEVA-2018-US-993771

PATIENT
  Age: 92 Year
  Sex: Female

DRUGS (5)
  1. QVAR REDIHALER [Suspect]
     Active Substance: BECLOMETHASONE DIPROPIONATE
     Indication: WHEEZING
     Route: 065
     Dates: start: 2018
  2. LASIX [Concomitant]
     Active Substance: FUROSEMIDE
     Indication: OEDEMA
  3. VENTOLIN [Concomitant]
     Active Substance: ALBUTEROL SULFATE
     Route: 065
  4. QVAR REDIHALER [Suspect]
     Active Substance: BECLOMETHASONE DIPROPIONATE
     Indication: RESPIRATORY TRACT INFLAMMATION
     Dosage: TWO PUFFS ONCE TO TWICE DAILY
     Route: 065
     Dates: start: 201801
  5. CORTICOSTEROID [Concomitant]
     Active Substance: CORTICOSTEROID NOS
     Indication: RASH
     Route: 065

REACTIONS (8)
  - Gallbladder operation [Recovered/Resolved]
  - Malaise [Unknown]
  - Loss of consciousness [Unknown]
  - Influenza [Not Recovered/Not Resolved]
  - Dizziness [Unknown]
  - Product prescribing error [Unknown]
  - Fall [Unknown]
  - Infection [Unknown]

NARRATIVE: CASE EVENT DATE: 201802
